FAERS Safety Report 7621421-X (Version None)
Quarter: 2011Q3

REPORT INFORMATION
  Report Type: 
  Country: None (occurrence: None)
  Receive Date: 20110719
  Receipt Date: 20110713
  Transmission Date: 20111222
  Serious: Yes (Hospitalization, Other)
  Sender: FDA-Public Use
  Company Number: JP-CEPHALON-2011002108

PATIENT
  Sex: Male

DRUGS (8)
  1. BENDAMUSTINE HCL [Suspect]
     Indication: MANTLE CELL LYMPHOMA
     Route: 042
     Dates: start: 20110107
  2. GLIMEPIRIDE [Concomitant]
  3. PIOGLITAZONE [Concomitant]
  4. SITAGLIPTIN PHOSPHATE [Concomitant]
  5. ALLOPURINOL [Concomitant]
  6. METFORMIN HYDROCHLORIDE [Concomitant]
     Dates: start: 20110202
  7. MAGNESIUM OXIDE [Concomitant]
  8. VOGLIBOSE [Concomitant]

REACTIONS (5)
  - HERPES ZOSTER [None]
  - DIABETES MELLITUS [None]
  - INTERSTITIAL LUNG DISEASE [None]
  - PLATELET COUNT DECREASED [None]
  - WHITE BLOOD CELL COUNT DECREASED [None]
